FAERS Safety Report 11228326 (Version 4)
Quarter: 2015Q3

REPORT INFORMATION
  Report Type: Spontaneous
  Country: US (occurrence: US)
  Receive Date: 20150630
  Receipt Date: 20150825
  Transmission Date: 20151125
  Serious: Yes (Hospitalization, Other)
  Sender: FDA-Public Use
  Company Number: US-009507513-1506USA010240

PATIENT
  Sex: Female
  Weight: 47.17 kg

DRUGS (2)
  1. FOSAMAX [Suspect]
     Active Substance: ALENDRONATE SODIUM
     Indication: OSTEOPOROSIS
     Dosage: 10 MG, QD
     Route: 048
     Dates: start: 1998, end: 20010217
  2. FOSAMAX [Suspect]
     Active Substance: ALENDRONATE SODIUM
     Dosage: 70 MG, QW
     Route: 048
     Dates: start: 20010330, end: 20060208

REACTIONS (18)
  - Blood homocysteine increased [Unknown]
  - Vitamin D deficiency [Unknown]
  - Femur fracture [Unknown]
  - Hypertension [Unknown]
  - Intramedullary rod insertion [Unknown]
  - Anaemia [Unknown]
  - Femur fracture [Recovered/Resolved]
  - Hand fracture [Unknown]
  - Cataract [Unknown]
  - Thyroid hormones decreased [Unknown]
  - Fibrocystic breast disease [Unknown]
  - Hyperlipidaemia [Unknown]
  - Osteoma [Unknown]
  - Intramedullary rod insertion [Unknown]
  - Constipation [Recovered/Resolved]
  - Femur fracture [Unknown]
  - Large intestine polyp [Unknown]
  - Bursitis [Unknown]

NARRATIVE: CASE EVENT DATE: 20040524
